FAERS Safety Report 19023637 (Version 1)
Quarter: 2021Q1

REPORT INFORMATION
  Report Type: Report from Study
  Country: DO (occurrence: DO)
  Receive Date: 20210318
  Receipt Date: 20210318
  Transmission Date: 20210420
  Serious: Yes (Death, Hospitalization, Other)
  Sender: FDA-Public Use
  Company Number: DO-JNJFOC-20210146670

PATIENT
  Age: 73 Year
  Sex: Female
  Weight: 46.72 kg

DRUGS (4)
  1. DARZALEX [Suspect]
     Active Substance: DARATUMUMAB
     Indication: PLASMA CELL MYELOMA
     Route: 042
     Dates: start: 20210122
  2. DARZALEX [Suspect]
     Active Substance: DARATUMUMAB
     Route: 042
     Dates: start: 20201231, end: 20210302
  3. PARACETAMOL [Concomitant]
     Active Substance: ACETAMINOPHEN
  4. LENALIDOMIDE [Suspect]
     Active Substance: LENALIDOMIDE
     Indication: PLASMA CELL MYELOMA
     Route: 065

REACTIONS (6)
  - Death [Fatal]
  - Plasma cell myeloma [Unknown]
  - Platelet count decreased [Unknown]
  - Pneumonia [Unknown]
  - Sepsis [Unknown]
  - Escherichia urinary tract infection [Unknown]

NARRATIVE: CASE EVENT DATE: 202101
